FAERS Safety Report 9469713 (Version 3)
Quarter: 2014Q3

REPORT INFORMATION
  Report Type: Spontaneous
  Country: MX (occurrence: MX)
  Receive Date: 20130822
  Receipt Date: 20140804
  Transmission Date: 20150326
  Serious: No
  Sender: FDA-Public Use
  Company Number: PHHY2013MX090358

PATIENT
  Age: 87 Year
  Sex: Female

DRUGS (11)
  1. EXFORGE HCT [Suspect]
     Active Substance: AMLODIPINE BESYLATE\HYDROCHLOROTHIAZIDE\VALSARTAN
     Indication: HYPERTENSION
     Dosage: UNK UKN, UNK
  2. FOSAMAX PLUS D [Concomitant]
     Active Substance: ALENDRONATE SODIUM\CHOLECALCIFEROL
     Indication: BONE DISORDER
     Dosage: UNK UKN, UNK
     Dates: start: 201303
  3. METEOSPASMIL [Concomitant]
     Indication: GASTROINTESTINAL DISORDER
     Dosage: UNK UKN, UNK
     Dates: start: 201304
  4. TYLEX                              /00116401/ [Concomitant]
     Active Substance: ACETAMINOPHEN\CODEINE PHOSPHATE
     Indication: PAIN
     Dosage: UNK UKN, UNK
     Dates: start: 2012
  5. EXFORGE [Suspect]
     Active Substance: AMLODIPINE BESYLATE\VALSARTAN
     Indication: HYPERTENSION
     Dosage: UNK UKN, UNK
  6. DIOVAN [Suspect]
     Active Substance: VALSARTAN
     Dosage: 1 DF (320 MG), BID (ONE IN THE MORNING AND ONE IN THE AFTERNOON
     Route: 048
  7. LOSECA [Concomitant]
     Indication: GASTRIC DISORDER
     Dosage: UNK UKN, UNK
  8. CO-DIOVAN [Suspect]
     Active Substance: HYDROCHLOROTHIAZIDE\VALSARTAN
     Indication: HYPERTENSION
     Dosage: UNK UKN, UNK
  9. DIOVAN [Suspect]
     Active Substance: VALSARTAN
     Indication: HYPERTENSION
     Dosage: UNK UKN (80 MG), UNK
  10. VARTALON [Concomitant]
     Indication: BONE DISORDER
     Dosage: UNK UKN, UNK
  11. DORIXINA//CLONIXIN [Concomitant]
     Indication: RIB FRACTURE
     Dosage: UNK UKN, UNK

REACTIONS (2)
  - Blood pressure fluctuation [Recovered/Resolved]
  - Drug ineffective [Recovered/Resolved]
